FAERS Safety Report 9217086 (Version 1)
Quarter: 2013Q2

REPORT INFORMATION
  Report Type: Spontaneous
  Country: DK (occurrence: FR)
  Receive Date: 20130408
  Receipt Date: 20130408
  Transmission Date: 20140414
  Serious: Yes (Hospitalization)
  Sender: FDA-Public Use
  Company Number: FR-FRI-1000044067

PATIENT
  Age: 91 Year
  Sex: Female

DRUGS (6)
  1. ESCITALOPRAM [Suspect]
     Dosage: 5 MG
     Route: 048
     Dates: start: 201210
  2. KARDEGIC [Interacting]
     Dosage: 75 MG
     Route: 048
     Dates: start: 2005, end: 20130214
  3. TEMESTA [Concomitant]
     Dosage: 5 MG
     Route: 048
     Dates: start: 2005
  4. HEMIGOXINE NATIVELLE [Concomitant]
     Dosage: 0.0625 MG
     Route: 048
     Dates: start: 2005
  5. SELOKEN [Concomitant]
     Dosage: 200 MG
     Route: 048
     Dates: start: 2005
  6. LASILIX [Concomitant]
     Dosage: 40 MG
     Route: 048
     Dates: start: 2005

REACTIONS (4)
  - Melaena [Recovered/Resolved]
  - Iron deficiency anaemia [Recovered/Resolved]
  - Duodenal ulcer [Unknown]
  - Drug interaction [Recovered/Resolved]
